FAERS Safety Report 4689740-7 (Version None)
Quarter: 2005Q2

REPORT INFORMATION
  Report Type: 
  Country: None (occurrence: None)
  Receive Date: 20050608
  Receipt Date: 20050401
  Transmission Date: 20051028
  Serious: No
  Sender: FDA-Public Use
  Company Number: 2005-BP-05577BP

PATIENT
  Age: 85 Year
  Sex: Female

DRUGS (16)
  1. SPIRIVA [Suspect]
     Indication: BRONCHITIS CHRONIC
     Dosage: 1 CAPSULE (18 MCG, QD) IH
     Route: 055
     Dates: start: 20050328, end: 20050331
  2. SPIRIVA [Suspect]
     Indication: EMPHYSEMA
  3. ATACAND [Concomitant]
  4. INDAPAMIDE [Concomitant]
  5. SUPPLEMENTAL MINERAL [Concomitant]
  6. TYLENOL [Concomitant]
  7. VITAMIN A [Concomitant]
  8. VITAMIN B(VITAMIN B) [Concomitant]
  9. CALCIUM(CALCIUM) [Concomitant]
  10. MAGNESIUM(MAGNESIUM) [Concomitant]
  11. ZINC [Concomitant]
  12. POTASSIUM ACETATE [Concomitant]
  13. ECHINECEA(ECHINACEA COMPLEX) [Concomitant]
  14. ADVANCED VITAMIN B [Concomitant]
  15. VITAMIN C(ASCORBIC ACID) [Concomitant]
  16. VITAMIN E [Concomitant]

REACTIONS (1)
  - COUGH [None]
